FAERS Safety Report 10234687 (Version 1)
Quarter: 2014Q2

REPORT INFORMATION
  Report Type: Spontaneous
  Country: US (occurrence: US)
  Receive Date: 20140613
  Receipt Date: 20140613
  Transmission Date: 20141212
  Serious: No
  Sender: FDA-Public Use
  Company Number: US-009507513-1406USA006722

PATIENT
  Sex: 0

DRUGS (2)
  1. MAXALT [Suspect]
     Route: 048
  2. IMITREX (SUMATRIPTAN) [Suspect]

REACTIONS (1)
  - Adverse drug reaction [Unknown]
